FAERS Safety Report 9994731 (Version 1)
Quarter: 2014Q1

REPORT INFORMATION
  Report Type: Spontaneous
  Country: US (occurrence: None)
  Receive Date: 20140307
  Receipt Date: 20140307
  Transmission Date: 20141002
  Serious: Yes (Life-Threatening)
  Sender: FDA-Public Use
  Company Number: None

PATIENT
  Age: 66 Year
  Sex: Male
  Weight: 66.4 kg

DRUGS (1)
  1. PROCHLORPERAZINE [Suspect]
     Indication: NEUROLEPTIC MALIGNANT SYNDROME
     Route: 030
     Dates: start: 20140228, end: 20140228

REACTIONS (8)
  - Confusional state [None]
  - Vomiting [None]
  - Nausea [None]
  - Hyperhidrosis [None]
  - Hypertension [None]
  - Sinus tachycardia [None]
  - Hypoxia [None]
  - Neuroleptic malignant syndrome [None]
